FAERS Safety Report 8187840-0 (Version None)
Quarter: 2012Q1

REPORT INFORMATION
  Report Type: 
  Country: None (occurrence: None)
  Receive Date: 20120306
  Receipt Date: 20120227
  Transmission Date: 20120608
  Serious: Yes (Hospitalization)
  Sender: FDA-Public Use
  Company Number: US-BAYER-201033468NA

PATIENT
  Age: 35 Year
  Sex: Female
  Weight: 68 kg

DRUGS (10)
  1. LAMOTRIGINE [Concomitant]
     Indication: DEPRESSION
  2. DROSPIRENONE AND ETHINYL ESTRADIOL [Suspect]
     Indication: PREMENSTRUAL SYNDROME
     Dosage: UNK
     Dates: start: 20081001, end: 20091001
  3. DROSPIRENONE AND ETHINYL ESTRADIOL [Suspect]
     Indication: ORAL CONTRACEPTION
     Dosage: UNK UNK, UNK
     Route: 065
     Dates: start: 20081204, end: 20090104
  4. YASMIN [Suspect]
     Indication: ORAL CONTRACEPTION
     Dosage: UNK
     Dates: start: 20080501, end: 20080701
  5. MINOCYCLINE HCL [Concomitant]
     Indication: ACNE CYSTIC
     Dosage: 2-100 MG, QD IN FEB, MAY, AUG, NOV 2008
  6. LAMOTRIGINE [Concomitant]
     Indication: PREMENSTRUAL SYNDROME
     Dosage: 200 MG, TID
     Dates: start: 20081201, end: 20081201
  7. GLUCOSAMINE SULFATE W/CHONDROITIN [Concomitant]
     Dosage: UNK UNK, TID
     Dates: start: 20081218
  8. WELLBUTRIN [Concomitant]
     Dosage: 150 MG, BID
     Dates: start: 20081218
  9. YASMIN [Suspect]
     Indication: PREMENSTRUAL SYNDROME
  10. TRILEPTAL [Concomitant]
     Dosage: UNK UNK, TID
     Dates: start: 20081218

REACTIONS (9)
  - DIARRHOEA [None]
  - DYSPEPSIA [None]
  - DEPRESSION [None]
  - CHOLECYSTITIS [None]
  - CONSTIPATION [None]
  - CHOLECYSTECTOMY [None]
  - ABDOMINAL DISTENSION [None]
  - ANXIETY [None]
  - FLATULENCE [None]
